FAERS Safety Report 20446369 (Version 4)
Quarter: 2022Q2

REPORT INFORMATION
  Report Type: Report from Study
  Country: JP (occurrence: JP)
  Receive Date: 20220208
  Receipt Date: 20220413
  Transmission Date: 20220720
  Serious: Yes (Hospitalization)
  Sender: FDA-Public Use
  Company Number: JP-Eisai-202111432_BOLD-LF_C_1

PATIENT
  Age: 81 Year
  Sex: Male
  Weight: 57 kg

DRUGS (18)
  1. ERIBULIN [Suspect]
     Active Substance: ERIBULIN
     Indication: Neoplasm
     Route: 041
     Dates: start: 20210914, end: 20220105
  2. NIVOLUMAB [Suspect]
     Active Substance: NIVOLUMAB
     Indication: Neoplasm
     Route: 041
     Dates: start: 20210914, end: 20220105
  3. AMBROXOL HYDROCHLORIDE OD [Concomitant]
     Indication: Cough
     Route: 048
     Dates: start: 20210922
  4. CARBOCYSTEINE [Concomitant]
     Active Substance: CARBOCYSTEINE
     Indication: Cough
     Route: 048
     Dates: start: 20210922
  5. TSUMURA GOREISAN EXTRACT GRANULES FOR ETHICAL USE [Concomitant]
     Indication: Prophylaxis
     Route: 048
     Dates: start: 20211001
  6. BELSOMRA [Concomitant]
     Active Substance: SUVOREXANT
     Indication: Insomnia
     Route: 048
     Dates: start: 20210328
  7. TRAZODONE HYDROCHLORIDE [Concomitant]
     Active Substance: TRAZODONE HYDROCHLORIDE
     Indication: Insomnia
     Route: 048
     Dates: start: 20210922
  8. SALIPARA [Concomitant]
     Indication: Cough
     Route: 048
     Dates: start: 20210917
  9. HERBALS [Concomitant]
     Active Substance: HERBALS
     Indication: Cough
     Route: 048
     Dates: start: 20210917
  10. CODEINE PHOSPHATE [Concomitant]
     Active Substance: CODEINE PHOSPHATE
     Indication: Cough
     Route: 048
     Dates: start: 20210917
  11. CARBOHYDRATES\FATTY ACIDS\MINERALS\PROTEIN\VITAMINS [Concomitant]
     Active Substance: CARBOHYDRATES\FATTY ACIDS\MINERALS\PROTEIN\VITAMINS
     Indication: Decreased appetite
     Route: 048
     Dates: start: 20210925
  12. DESLORATADINE [Concomitant]
     Active Substance: DESLORATADINE
     Indication: Pruritus
     Route: 048
     Dates: start: 20220104
  13. EURAX [Concomitant]
     Active Substance: CROTAMITON
     Indication: Pruritus
     Route: 062
     Dates: start: 20220104
  14. EPINASTINE HYDROCHLORIDE [Concomitant]
     Active Substance: EPINASTINE HYDROCHLORIDE
     Indication: Pruritus
     Route: 048
     Dates: start: 20220104
  15. VENA PASTA [Concomitant]
     Indication: Pruritus
     Route: 062
     Dates: start: 20220124
  16. NEXIUM [Concomitant]
     Active Substance: ESOMEPRAZOLE MAGNESIUM
     Indication: Prophylaxis
     Route: 048
     Dates: start: 20211216
  17. NEO-MINOPHAGEN C [Concomitant]
     Active Substance: AMMONIUM GLYCYRRHIZATE
     Indication: Pruritus
     Route: 041
     Dates: start: 20220125
  18. POLARAMINE [Concomitant]
     Active Substance: DEXCHLORPHENIRAMINE MALEATE
     Indication: Pruritus
     Route: 041
     Dates: start: 20220125

REACTIONS (1)
  - Radiation pneumonitis [Recovering/Resolving]

NARRATIVE: CASE EVENT DATE: 20220125
